FAERS Safety Report 5815504-4 (Version None)
Quarter: 2008Q3

REPORT INFORMATION
  Report Type: 
  Country: None (occurrence: None)
  Receive Date: 20080718
  Receipt Date: 20080714
  Transmission Date: 20090109
  Serious: Yes (Death)
  Sender: FDA-Public Use
  Company Number: JP-ABBOTT-08P-087-0463857-00

PATIENT
  Sex: Male

DRUGS (9)
  1. LEUPROLIDE ACETATE [Suspect]
     Indication: SPINAL MUSCULAR ATROPHY
     Route: 058
     Dates: start: 20071205, end: 20080520
  2. TELMISARTAN [Concomitant]
     Indication: HYPERTENSION
     Route: 048
     Dates: start: 20041101, end: 20080711
  3. CARVEDILOL [Concomitant]
     Indication: HYPERTENSION
     Route: 048
     Dates: start: 20041101, end: 20080711
  4. KETOPROFEN [Concomitant]
     Indication: BACK PAIN
     Route: 062
     Dates: start: 20040101, end: 20080711
  5. MYPLASTER HOT [Concomitant]
     Indication: BACK PAIN
     Route: 062
     Dates: start: 20050101, end: 20080711
  6. OMEPRAZOLE [Concomitant]
     Indication: ASTHENOPIA
     Route: 047
     Dates: start: 20060701, end: 20080711
  7. LOXOPROFEN [Concomitant]
     Indication: BACK PAIN
     Route: 048
     Dates: start: 20080707
  8. EPIRIZOLE HYDROCHLORIDE [Concomitant]
     Indication: BACK PAIN
     Route: 048
     Dates: start: 20080707
  9. REBAMIPIDE [Concomitant]
     Indication: BACK PAIN
     Route: 048
     Dates: start: 20080707

REACTIONS (2)
  - FALL [None]
  - SUICIDE ATTEMPT [None]
